FAERS Safety Report 7070955-8 (Version None)
Quarter: 2010Q4

REPORT INFORMATION
  Report Type: 
  Country: None (occurrence: None)
  Receive Date: 20101029
  Receipt Date: 20101026
  Transmission Date: 20110411
  Serious: Yes (Other)
  Sender: FDA-Public Use
  Company Number: BR-PFIZER INC-2010133704

PATIENT
  Sex: Female

DRUGS (3)
  1. FELDENE [Suspect]
     Indication: ARTHRALGIA
     Dosage: 20 MG, 1X/DAY
     Route: 048
     Dates: start: 20101007, end: 20101016
  2. METFORMIN HYDROCHLORIDE [Concomitant]
     Indication: DIABETES MELLITUS
     Dosage: 500 MG, UNK
  3. DIAMICRON [Concomitant]
     Indication: DIABETES MELLITUS
     Dosage: 30 MG, UNK

REACTIONS (3)
  - ANAL HAEMORRHAGE [None]
  - DIARRHOEA [None]
  - DYSGEUSIA [None]
